FAERS Safety Report 10567413 (Version 1)
Quarter: 2014Q4

REPORT INFORMATION
  Report Type: Spontaneous
  Country: HU (occurrence: HU)
  Receive Date: 20141106
  Receipt Date: 20141106
  Transmission Date: 20150529
  Serious: Yes (Hospitalization)
  Sender: FDA-Public Use
  Company Number: HU-AMGEN-HUNSP2014085263

PATIENT
  Age: 64 Year
  Sex: Male
  Weight: 103 kg

DRUGS (10)
  1. ENBREL [Suspect]
     Active Substance: ETANERCEPT
     Indication: RHEUMATOID ARTHRITIS
     Dosage: 50 MG WEEKLY
     Route: 058
     Dates: end: 20141006
  2. PROPAFENONE. [Concomitant]
     Active Substance: PROPAFENONE
     Indication: MYOCARDIAL ISCHAEMIA
     Dosage: 150 MG, 2X/DAY
     Route: 048
  3. TERVALON [Concomitant]
     Indication: MYOCARDIAL ISCHAEMIA
  4. ASPIRIN PROTECT [Concomitant]
     Active Substance: ASPIRIN
     Indication: MYOCARDIAL ISCHAEMIA
     Dosage: 100 MG, 1X/DAY
     Route: 048
  5. FURON                              /00032601/ [Concomitant]
     Active Substance: FUROSEMIDE
     Indication: MYOCARDIAL ISCHAEMIA
     Dosage: 1 DF, EVERY TWO DAYS
     Route: 048
  6. KALDYUM [Concomitant]
     Active Substance: POTASSIUM CHLORIDE
     Indication: MYOCARDIAL ISCHAEMIA
     Dosage: 1 DF, EVERY TWO DAYS
     Route: 048
  7. TERVALON [Concomitant]
     Indication: HYPERTENSION
     Dosage: 50 MG, DAILY
     Route: 048
  8. CONCOR [Concomitant]
     Active Substance: BISOPROLOL FUMARATE
     Indication: HYPERTENSION
     Dosage: 2.5 MG, 1X/DAY
     Route: 048
  9. PANANGIN [Concomitant]
     Indication: MYOCARDIAL ISCHAEMIA
     Dosage: 1 DF, 2X/DAY
     Route: 048
  10. MEDROL [Concomitant]
     Active Substance: METHYLPREDNISOLONE
     Indication: RHEUMATOID ARTHRITIS
     Dosage: 4 MG, 1X/DAY
     Route: 048

REACTIONS (1)
  - Thyroiditis subacute [Recovered/Resolved]

NARRATIVE: CASE EVENT DATE: 20141001
